FAERS Safety Report 9275322 (Version 1)
Quarter: 2013Q2

REPORT INFORMATION
  Report Type: Spontaneous
  Country: US (occurrence: US)
  Receive Date: 20130507
  Receipt Date: 20130507
  Transmission Date: 20140414
  Serious: Yes (Hospitalization, Other)
  Sender: FDA-Public Use
  Company Number: US-PFIZER INC-2013136447

PATIENT
  Age: 86 Year
  Sex: Female

DRUGS (1)
  1. REVATIO [Suspect]
     Indication: PULMONARY ARTERIAL HYPERTENSION
     Dosage: 20 MG 2 TABLETS THREE TIMES A DAY
     Dates: start: 20130123

REACTIONS (3)
  - Pulmonary hypertension [Unknown]
  - Local swelling [Unknown]
  - Off label use [Unknown]
